FAERS Safety Report 18842652 (Version 1)
Quarter: 2021Q1

REPORT INFORMATION
  Report Type: Spontaneous
  Country: US (occurrence: US)
  Receive Date: 20210203
  Receipt Date: 20210203
  Transmission Date: 20210419
  Serious: No
  Sender: FDA-Public Use
  Company Number: None

PATIENT
  Age: 4 Year
  Sex: Male

DRUGS (4)
  1. ANTIHISTIMINE [Concomitant]
  2. ORAL STEROIDS [Concomitant]
     Active Substance: UNSPECIFIED INGREDIENT
  3. H2 BLOCKER [Concomitant]
  4. FABRAZYME [Suspect]
     Active Substance: AGALSIDASE BETA
     Indication: FABRY^S DISEASE
     Dosage: ?          OTHER FREQUENCY:Q 2 WEEKS;?

REACTIONS (4)
  - Throat tightness [None]
  - Infusion site rash [None]
  - Dyspnoea [None]
  - Heart rate increased [None]

NARRATIVE: CASE EVENT DATE: 20210125
